FAERS Safety Report 9088503 (Version 1)
Quarter: 2013Q1

REPORT INFORMATION
  Report Type: Spontaneous
  Country: US (occurrence: US)
  Receive Date: 20130201
  Receipt Date: 20130201
  Transmission Date: 20140127
  Serious: No
  Sender: FDA-Public Use
  Company Number: US-GALDERMA-US-GDP-12415111

PATIENT
  Sex: Female

DRUGS (2)
  1. EPIDUO [Suspect]
     Indication: ACNE
     Route: 061
     Dates: end: 20120904
  2. UNKNOWN TOPICAL ACCUTANE [Concomitant]
     Indication: ACNE
     Route: 061
     Dates: start: 201209

REACTIONS (2)
  - Drug ineffective [None]
  - Adverse drug reaction [None]
